FAERS Safety Report 23179854 (Version 4)
Quarter: 2024Q4

REPORT INFORMATION
  Report Type: Spontaneous
  Country: US (occurrence: US)
  Receive Date: 20231114
  Receipt Date: 20241005
  Transmission Date: 20250115
  Serious: Yes (Hospitalization)
  Sender: SANOFI AVENTIS
  Company Number: US-SA-2023SA339401

PATIENT
  Age: 69 Year
  Sex: Female

DRUGS (10)
  1. DUPIXENT [Suspect]
     Active Substance: DUPILUMAB
     Indication: Asthma
     Dosage: 300 MG, QOW
     Route: 058
     Dates: start: 202305
  2. BREZTRI [Concomitant]
     Active Substance: BUDESONIDE\FORMOTEROL\GLYCOPYRROLATE
  3. AIRSUPRA [BUDESONIDE;SALBUTAMOL SULFATE] [Concomitant]
  4. METFORMIN [Concomitant]
     Active Substance: METFORMIN HYDROCHLORIDE
  5. SPIRONOLACTONE [Concomitant]
     Active Substance: SPIRONOLACTONE
  6. FAMOTIDINE [Concomitant]
     Active Substance: FAMOTIDINE
  7. DILTIAZEM [Concomitant]
     Active Substance: DILTIAZEM
  8. VITAMIN D NOS [Concomitant]
     Active Substance: CHOLECALCIFEROL\ERGOCALCIFEROL
  9. ATORVASTATIN [Concomitant]
     Active Substance: ATORVASTATIN
  10. XARELTO [Concomitant]
     Active Substance: RIVAROXABAN

REACTIONS (9)
  - Chronic obstructive pulmonary disease [Unknown]
  - Dyspnoea [Unknown]
  - Throat irritation [Unknown]
  - Diarrhoea [Unknown]
  - Weight decreased [Unknown]
  - Injection site reaction [Unknown]
  - Dry eye [Unknown]
  - Arthralgia [Unknown]
  - Decreased appetite [Not Recovered/Not Resolved]
